FAERS Safety Report 4578551-9 (Version None)
Quarter: 2005Q1

REPORT INFORMATION
  Report Type: 
  Country: None (occurrence: None)
  Receive Date: 20050211
  Receipt Date: 20050203
  Transmission Date: 20050727
  Serious: Yes (Death)
  Sender: FDA-Public Use
  Company Number: US-GLAXOSMITHKLINE-A0543675A

PATIENT
  Age: 71 Year
  Sex: Female
  Weight: 51 kg

DRUGS (6)
  1. NICORETTE (MINT) [Suspect]
     Indication: SMOKING CESSATION THERAPY
     Route: 002
     Dates: start: 20030101
  2. PHENOBARBITAL [Concomitant]
     Indication: EPILEPSY
     Route: 048
  3. VALIUM [Concomitant]
     Route: 048
  4. LITHIUM [Concomitant]
     Indication: DEPRESSION
     Route: 048
  5. LEVOTHYROXINE [Concomitant]
     Route: 048
  6. TYLENOL [Concomitant]

REACTIONS (4)
  - COLON CANCER [None]
  - DRUG ABUSER [None]
  - INTENTIONAL MISUSE [None]
  - RECTAL HAEMORRHAGE [None]
